FAERS Safety Report 11863595 (Version 15)
Quarter: 2021Q3

REPORT INFORMATION
  Report Type: Report from Study
  Country: CA (occurrence: CA)
  Receive Date: 20151223
  Receipt Date: 20210726
  Transmission Date: 20211014
  Serious: Yes (Other)
  Sender: FDA-Public Use
  Company Number: PHHY2014CA154360

PATIENT
  Age: 43 Year
  Sex: Female

DRUGS (8)
  1. SANDOSTATIN LAR DEPOT [Suspect]
     Active Substance: OCTREOTIDE ACETATE
     Dosage: 30 MG, QMO (EVERY 4 WEEKS)
     Route: 030
     Dates: start: 20161219
  2. CODEINE [Suspect]
     Active Substance: CODEINE
     Indication: PRODUCT USED FOR UNKNOWN INDICATION
     Dosage: UNK
     Route: 065
  3. CELEXA [Concomitant]
     Active Substance: CITALOPRAM HYDROBROMIDE
     Indication: PRODUCT USED FOR UNKNOWN INDICATION
     Dosage: UNK
     Route: 065
  4. SANDOSTATIN [Suspect]
     Active Substance: OCTREOTIDE ACETATE
  5. SANDOSTATIN LAR DEPOT [Suspect]
     Active Substance: OCTREOTIDE ACETATE
     Indication: ACROMEGALY
     Dosage: 30 MG, QMO (EVERY FOUR WEEK)
     Route: 030
     Dates: start: 20141022
  6. SANDOSTATIN [Suspect]
     Active Substance: OCTREOTIDE ACETATE
  7. SANDOSTATIN LAR DEPOT [Suspect]
     Active Substance: OCTREOTIDE ACETATE
     Dosage: 20 MG, QMO
     Route: 030
     Dates: start: 20160923, end: 20161118
  8. SANDOSTATIN [Suspect]
     Active Substance: OCTREOTIDE ACETATE
     Indication: ACROMEGALY
     Dosage: ONCE/SINGLE (TEST DOSE)
     Route: 058
     Dates: start: 201409, end: 201409

REACTIONS (31)
  - Neoplasm progression [Unknown]
  - Mood swings [Unknown]
  - Hypersomnia [Unknown]
  - Weight decreased [Unknown]
  - Biliary colic [Unknown]
  - Hormone level abnormal [Unknown]
  - Dizziness [Unknown]
  - Pneumonia bacterial [Unknown]
  - Anger [Unknown]
  - Emotional disorder [Unknown]
  - Foot fracture [Unknown]
  - Headache [Unknown]
  - Depressed mood [Unknown]
  - Influenza like illness [Unknown]
  - Fatigue [Unknown]
  - Fall [Unknown]
  - Heart rate increased [Unknown]
  - Haemorrhage [Unknown]
  - Blood pressure increased [Unknown]
  - Insomnia [Unknown]
  - Heavy menstrual bleeding [Unknown]
  - Diarrhoea [Unknown]
  - Needle issue [Unknown]
  - Mood altered [Unknown]
  - Illness [Unknown]
  - Morose [Unknown]
  - Stress [Unknown]
  - Food poisoning [Unknown]
  - Impatience [Unknown]
  - Cough [Unknown]
  - Injection site pain [Unknown]

NARRATIVE: CASE EVENT DATE: 2014
